FAERS Safety Report 23335745 (Version 1)
Quarter: 2023Q4

REPORT INFORMATION
  Report Type: Spontaneous
  Country: FR (occurrence: None)
  Receive Date: 20231225
  Receipt Date: 20231225
  Transmission Date: 20240110
  Serious: Yes (Other)
  Sender: FDA-Public Use
  Company Number: 2023A292610

PATIENT
  Age: 2 Month

DRUGS (1)
  1. BEYFORTUS [Suspect]
     Active Substance: NIRSEVIMAB-ALIP
     Dosage: UNK
     Route: 030

REACTIONS (1)
  - Respiratory syncytial virus bronchiolitis [Unknown]
